FAERS Safety Report 23666652 (Version 1)
Quarter: 2024Q1

REPORT INFORMATION
  Report Type: Spontaneous
  Country: GB (occurrence: GB)
  Receive Date: 20240325
  Receipt Date: 20240325
  Transmission Date: 20240409
  Serious: Yes (Other)
  Sender: FDA-Public Use
  Company Number: GB-MHRA-MED-202403101051176840-KNMGD

PATIENT
  Age: 39 Year
  Sex: Female
  Weight: 85 kg

DRUGS (5)
  1. AMOXICILLIN\CLAVULANATE POTASSIUM [Suspect]
     Active Substance: AMOXICILLIN\CLAVULANATE POTASSIUM
     Indication: Lower respiratory tract infection bacterial
     Dosage: UNK (500/125MG 3 TIMES DAILY)
     Route: 065
     Dates: start: 20240309, end: 20240309
  2. AMOXICILLIN [Concomitant]
     Active Substance: AMOXICILLIN
     Indication: Lower respiratory tract infection
     Dosage: UNK
     Route: 065
     Dates: start: 20240229, end: 20240304
  3. CLARITHROMYCIN [Concomitant]
     Active Substance: CLARITHROMYCIN
     Indication: Lower respiratory tract infection
     Dosage: UNK
     Route: 065
     Dates: start: 20240304, end: 20240308
  4. COCODAMOL [Concomitant]
     Active Substance: ACETAMINOPHEN\CODEINE PHOSPHATE
     Indication: Pleurisy
     Dosage: UNK
     Route: 065
     Dates: start: 20240208
  5. PREDNISOLONE [Concomitant]
     Active Substance: PREDNISOLONE
     Indication: Laryngitis
     Dosage: UNK
     Route: 065
     Dates: start: 20240305, end: 20240307

REACTIONS (5)
  - Tremor [Recovered/Resolved with Sequelae]
  - Dizziness [Recovered/Resolved with Sequelae]
  - Neck pain [Recovered/Resolved]
  - Hypoaesthesia [Recovered/Resolved]
  - Nausea [Recovered/Resolved]

NARRATIVE: CASE EVENT DATE: 20240309
